FAERS Safety Report 4607871-4 (Version None)
Quarter: 2005Q1

REPORT INFORMATION
  Report Type: 
  Country: None (occurrence: None)
  Receive Date: 20050314
  Receipt Date: 20050309
  Transmission Date: 20050727
  Serious: Yes (Other)
  Sender: FDA-Public Use
  Company Number: PHBS2005JP03515

PATIENT
  Age: 11 Year
  Sex: Male

DRUGS (1)
  1. ZADITEN [Suspect]
     Route: 048
     Dates: start: 20030801

REACTIONS (1)
  - LIVER DISORDER [None]
